FAERS Safety Report 6758813-7 (Version None)
Quarter: 2010Q2

REPORT INFORMATION
  Report Type: 
  Country: None (occurrence: None)
  Receive Date: 20100603
  Receipt Date: 20100519
  Transmission Date: 20101027
  Serious: Yes (Hospitalization)
  Sender: FDA-Public Use
  Company Number: 2010001372

PATIENT
  Age: 50 Year
  Sex: Male

DRUGS (10)
  1. ERLOTINIB HYDROCHLORIDE [Suspect]
     Indication: PANCREATIC CARCINOMA METASTATIC
     Dosage: (150 MG,QD), ORAL
     Route: 048
     Dates: start: 20100222
  2. DRUG VEHICLE NOS [Suspect]
     Indication: PANCREATIC CARCINOMA METASTATIC
     Dosage: (1876 MG), INTRAVENOUS
     Route: 042
     Dates: start: 20100222
  3. ARIXTRA CELEXA (CITALOPRAM HYDROBROMIDE) [Concomitant]
  4. METHADONE HCL [Concomitant]
  5. MEGAVITAMIN [Concomitant]
  6. NEURONTIN [Concomitant]
  7. PANCRELIPASE (PANCRELIPASE) [Concomitant]
  8. SENNA (SENNA) [Concomitant]
  9. HYDROCORTONE [Concomitant]
  10. OXYGEN (OXYGEN) [Concomitant]

REACTIONS (5)
  - ACUTE RESPIRATORY DISTRESS SYNDROME [None]
  - LUNG INFILTRATION [None]
  - MALIGNANT NEOPLASM PROGRESSION [None]
  - PANCREATIC CARCINOMA METASTATIC [None]
  - PLEURAL EFFUSION [None]
